FAERS Safety Report 7673373-4 (Version None)
Quarter: 2011Q3

REPORT INFORMATION
  Report Type: 
  Country: None (occurrence: None)
  Receive Date: 20110810
  Receipt Date: 20110804
  Transmission Date: 20111222
  Serious: Yes (Hospitalization)
  Sender: FDA-Public Use
  Company Number: US-BAYER-2011-004818

PATIENT
  Age: 33 Year
  Sex: Female
  Weight: 81.633 kg

DRUGS (4)
  1. YASMIN [Suspect]
  2. DROSPIRENONE AND ETHINYL ESTRADIOL [Suspect]
     Dosage: UNK
     Route: 048
     Dates: start: 20000101, end: 20070101
  3. PRILOSEC [Concomitant]
  4. LISINOPRIL [Concomitant]

REACTIONS (4)
  - INJURY [None]
  - CHOLELITHIASIS [None]
  - EMOTIONAL DISTRESS [None]
  - PAIN [None]
